FAERS Safety Report 24355123 (Version 1)
Quarter: 2024Q3

REPORT INFORMATION
  Report Type: Report from Study
  Country: BR (occurrence: BR)
  Receive Date: 20240923
  Receipt Date: 20240923
  Transmission Date: 20241017
  Serious: Yes (Hospitalization)
  Sender: BIOGEN
  Company Number: BR-BIOGEN-2024BI01283150

PATIENT
  Age: 32 Year
  Sex: Male
  Weight: 105 kg

DRUGS (6)
  1. TYSABRI [Suspect]
     Active Substance: NATALIZUMAB
     Indication: Multiple sclerosis
     Route: 050
     Dates: start: 202211
  2. FLUOXETINE [Concomitant]
     Active Substance: FLUOXETINE HYDROCHLORIDE
     Indication: Anxiety
     Route: 050
     Dates: start: 2013
  3. PROPRANOLOL [Concomitant]
     Active Substance: PROPRANOLOL HYDROCHLORIDE
     Indication: Headache
     Route: 050
     Dates: start: 20240725
  4. NAPROXEN [Concomitant]
     Active Substance: NAPROXEN
     Indication: Neuritis
     Route: 050
     Dates: start: 20240903
  5. CYCLOBENZAPRINE [Concomitant]
     Active Substance: CYCLOBENZAPRINE
     Indication: Neuritis
     Route: 050
     Dates: start: 20240903
  6. AMITRIPTYLINE [Concomitant]
     Active Substance: AMITRIPTYLINE
     Indication: Headache
     Dosage: 2 TABLETS EVERY DAY AFTER THE DINNER
     Route: 050
     Dates: start: 2021

REACTIONS (4)
  - Influenza [Recovered/Resolved]
  - Multiple sclerosis relapse [Recovered/Resolved]
  - Drug ineffective [Not Recovered/Not Resolved]
  - Multiple sclerosis [Not Recovered/Not Resolved]

NARRATIVE: CASE EVENT DATE: 20240701
